FAERS Safety Report 7819448-8 (Version None)
Quarter: 2011Q4

REPORT INFORMATION
  Report Type: 
  Country: None (occurrence: None)
  Receive Date: 20111018
  Receipt Date: 20110103
  Transmission Date: 20120403
  Serious: No
  Sender: FDA-Public Use
  Company Number: US-ASTRAZENECA-2011SE00472

PATIENT
  Age: 49 Year
  Sex: Female

DRUGS (2)
  1. SYMBICORT [Suspect]
     Dosage: 160 / 4.5 MCG, TWO PUFFS, TWO TIMES A DAY.
     Route: 055
  2. NEXIUM [Suspect]
     Route: 048

REACTIONS (1)
  - CATARACT [None]
